FAERS Safety Report 4502342-8 (Version None)
Quarter: 2004Q4

REPORT INFORMATION
  Report Type: 
  Country: None (occurrence: None)
  Receive Date: 20041110
  Receipt Date: 20041102
  Transmission Date: 20050328
  Serious: Yes (Hospitalization)
  Sender: FDA-Public Use
  Company Number: STA-AE-04-MTX-531

PATIENT
  Age: 57 Year

DRUGS (9)
  1. RHEUMATREX [Suspect]
     Indication: RHEUMATOID ARTHRITIS
     Dosage: 8 MG PER WEEK, ORAL
     Route: 048
     Dates: start: 20020801, end: 20040308
  2. AZULFIDINE [Suspect]
     Indication: RHEUMATOID ARTHRITIS
     Dosage: 1 KG PER DAY, ORAL
     Route: 048
     Dates: start: 19970101
  3. RISEDRONATE SODIUM [Suspect]
     Dosage: 2.5 MG DAILLY, ORAL
     Route: 048
     Dates: start: 20040228
  4. REMICADE [Suspect]
     Indication: RHEUMATOID ARTHRITIS
     Dosage: 3 MG DAILY, INTRAVENOUS DRIP
     Route: 042
     Dates: start: 20040226, end: 20040226
  5. GASTER (FAMOTIDINE) [Concomitant]
  6. SELBEX (TEPRENONE) [Concomitant]
  7. FOLIC ACID [Concomitant]
  8. PREDNISOLONE [Concomitant]
  9. LOXOPROFEN SODIUM (LOXOPROFEN SODIUM) [Concomitant]

REACTIONS (10)
  - CONJUNCTIVAL HYPERAEMIA [None]
  - DIZZINESS [None]
  - HAEMOPHILUS INFECTION [None]
  - HEPATIC FUNCTION ABNORMAL [None]
  - HOARSENESS [None]
  - HYPERTENSION [None]
  - INFLUENZA [None]
  - INTERSTITIAL LUNG DISEASE [None]
  - PHARYNGEAL ERYTHEMA [None]
  - REFUSAL OF TREATMENT BY PATIENT [None]
